FAERS Safety Report 12807238 (Version 4)
Quarter: 2017Q1

REPORT INFORMATION
  Report Type: Report from Study
  Country: JP (occurrence: JP)
  Receive Date: 20161004
  Receipt Date: 20170215
  Transmission Date: 20170428
  Serious: Yes (Death, Life-Threatening, Other)
  Sender: FDA-Public Use
  Company Number: JP-PFIZER INC-2016456773

PATIENT
  Age: 75 Year
  Sex: Male

DRUGS (54)
  1. HANP [Concomitant]
     Active Substance: CARPERITIDE
     Dosage: UNK
     Dates: start: 20130216
  2. CALCICOL [Concomitant]
     Active Substance: CALCIUM GLUCONATE
     Dosage: UNK
     Dates: start: 20130217
  3. RECOMODULIN [Concomitant]
     Active Substance: THROMBOMODULIN ALFA
     Dosage: UNK
     Dates: start: 20130314
  4. ANHIBA [Concomitant]
     Active Substance: ACETAMINOPHEN
     Dosage: 200
     Route: 054
     Dates: start: 20130217
  5. ARTIST [Concomitant]
     Active Substance: CARVEDILOL
     Dosage: 0.625 MG
     Dates: start: 20130220
  6. HERBESSER [Concomitant]
     Active Substance: DILTIAZEM HYDROCHLORIDE
     Dosage: 200 MG
     Route: 048
     Dates: start: 20130223
  7. NEOAMIYU [Concomitant]
     Active Substance: AMINO ACIDS
     Dosage: 200 ML, 1X/DAY
     Route: 042
     Dates: start: 20130324
  8. FUNGUARD [Concomitant]
     Active Substance: MICAFUNGIN SODIUM
     Dosage: UNK
     Dates: start: 20130313
  9. RECOMODULIN [Concomitant]
     Active Substance: THROMBOMODULIN ALFA
     Dosage: UNK
     Dates: start: 20130324
  10. OMEPRAL /00661201/ [Concomitant]
     Active Substance: OMEPRAZOLE
     Dosage: UNK
     Dates: start: 20130217
  11. TAKEPRON [Concomitant]
     Active Substance: LANSOPRAZOLE
     Dosage: 30 MG
     Dates: start: 20130220
  12. ZYVOX [Concomitant]
     Active Substance: LINEZOLID
     Dosage: 1200 MG
     Route: 048
     Dates: start: 20130312
  13. KCL [Concomitant]
     Active Substance: POTASSIUM CHLORIDE
     Dosage: 60 MEQ, 1X/DAY
     Route: 042
     Dates: start: 20130324
  14. CIRCRES [Concomitant]
     Dosage: UNK
     Dates: start: 20130216
  15. ANCARON [Concomitant]
     Active Substance: AMIODARONE HYDROCHLORIDE
     Dosage: 200 MG
     Route: 048
     Dates: start: 20130306
  16. CERCINE [Concomitant]
     Active Substance: DIAZEPAM
     Dosage: 0.2 G
     Route: 048
     Dates: start: 20130302
  17. SELBEX [Concomitant]
     Active Substance: TEPRENONE
     Dosage: 1.5 G
     Route: 048
     Dates: start: 20130319
  18. ALBUMINAR [Concomitant]
     Active Substance: ALBUMIN HUMAN
     Dosage: UNK
     Dates: start: 20130312
  19. ALBUMIN [Concomitant]
     Active Substance: ALBUMIN HUMAN
     Indication: BLOOD ALBUMIN DECREASED
     Dosage: UNK
     Dates: start: 20130308
  20. HICALIQ [Concomitant]
     Active Substance: CALCIUM GLUCONATE\DEXTROSE\MAGNESIUM SULFATE\POTASSIUM ACETATE\POTASSIUM PHOSPHATE, DIBASIC\ZINC SULFATE
     Dosage: 500 ML, 1X/DAY
     Route: 042
     Dates: start: 20130324
  21. ZOSYN [Concomitant]
     Active Substance: PIPERACILLIN SODIUM\TAZOBACTAM SODIUM
     Dosage: UNK
     Route: 042
     Dates: start: 20130226
  22. HEPARIN SODIUM. [Concomitant]
     Active Substance: HEPARIN SODIUM
     Dosage: UNK
     Dates: start: 20130216
  23. MORPHINE HYDROCHLORIDE [Concomitant]
     Active Substance: MORPHINE HYDROCHLORIDE
     Dosage: UNK
     Dates: start: 20130216
  24. FRANDOL [Concomitant]
     Active Substance: ISOSORBIDE DINITRATE
     Dosage: 40 MG
     Route: 062
     Dates: start: 20130218
  25. ARTIST [Concomitant]
     Active Substance: CARVEDILOL
     Dosage: 1.25 MG
     Route: 048
     Dates: start: 20130326
  26. GLACTIV [Concomitant]
     Active Substance: SITAGLIPTIN
     Dosage: 50 MG
     Route: 048
     Dates: start: 20130226
  27. EPADEL-S [Concomitant]
     Active Substance: ICOSAPENT ETHYL
     Dosage: 1800 MG
     Route: 048
     Dates: start: 20130301
  28. ENTERONON-R [Concomitant]
     Active Substance: PROBIOTICS NOS
     Dosage: 3 G
     Route: 048
     Dates: start: 20130324
  29. TIGECYCLINE. [Suspect]
     Active Substance: TIGECYCLINE
     Indication: SEPSIS
     Dosage: 100 MG, 1X/DAY
     Route: 041
     Dates: start: 20130324, end: 20130324
  30. CRAVIT [Concomitant]
     Active Substance: LEVOFLOXACIN
     Dosage: UNK
     Dates: start: 20130307
  31. NOREPINEPHRINE [Concomitant]
     Active Substance: NOREPINEPHRINE\NOREPINEPHRINE BITARTRATE
     Dosage: UNK
     Dates: start: 20130220
  32. FUTHAN [Concomitant]
     Active Substance: NAFAMOSTAT MESYLATE
     Dosage: UNK
     Dates: start: 20130313
  33. MEYLON [Concomitant]
     Active Substance: SODIUM BICARBONATE
     Dosage: UNK
     Dates: start: 20130324
  34. TIGECYCLINE. [Suspect]
     Active Substance: TIGECYCLINE
     Indication: INFECTION
     Dosage: 50 MG, 2X/DAY
     Route: 041
     Dates: start: 20130325, end: 20130404
  35. HABEKACIN /01069401/ [Concomitant]
     Active Substance: ARBEKACIN SULFATE
     Dosage: UNK
     Dates: start: 20130323
  36. CATABON [Concomitant]
     Active Substance: DOPAMINE HYDROCHLORIDE
     Dosage: UNK
     Dates: start: 20130216
  37. FENTANYL. [Concomitant]
     Active Substance: FENTANYL
     Dosage: UNK
     Dates: start: 20130218
  38. URSO [Concomitant]
     Active Substance: URSODIOL
     Dosage: 3 G
     Route: 048
     Dates: start: 20130323
  39. VITAJECT /07504101/ [Concomitant]
     Dosage: 1 DF, 1X/DAY
     Route: 042
     Dates: start: 20130324
  40. INOVAN /00360702/ [Concomitant]
     Dosage: UNK
     Dates: start: 20130217
  41. LASIX [Concomitant]
     Active Substance: FUROSEMIDE
     Dosage: UNK
     Dates: start: 20130218
  42. D-MANNITOL [Concomitant]
     Active Substance: MANNITOL
     Dosage: UNK
     Dates: start: 20130221
  43. DORMICUM /00036201/ [Concomitant]
     Active Substance: NITRAZEPAM
     Dosage: UNK
     Dates: start: 20130310
  44. HUMULIN R [Concomitant]
     Active Substance: INSULIN HUMAN
     Dosage: 10 IU, 1X/DAY
     Route: 042
     Dates: start: 20130324
  45. ANCARON [Concomitant]
     Active Substance: AMIODARONE HYDROCHLORIDE
     Dosage: 600 MG
     Dates: start: 20130219
  46. ANCARON [Concomitant]
     Active Substance: AMIODARONE HYDROCHLORIDE
     Dosage: 400 MG
     Dates: start: 20130223
  47. ANCARON [Concomitant]
     Active Substance: AMIODARONE HYDROCHLORIDE
     Dosage: 100 MG
     Dates: start: 20130326
  48. TAKEPRON [Concomitant]
     Active Substance: LANSOPRAZOLE
     Dosage: 15 MG
     Route: 048
     Dates: start: 20130326
  49. HUMULIN R [Concomitant]
     Active Substance: INSULIN HUMAN
     Dosage: UNK
     Dates: start: 20130217
  50. LENDORMIN [Concomitant]
     Active Substance: BROTIZOLAM
     Dosage: 0.25 MG
     Route: 048
     Dates: start: 20130219
  51. ITOROL [Concomitant]
     Active Substance: ISOSORBIDE MONONITRATE
     Dosage: 40 MG
     Route: 048
     Dates: start: 20130223
  52. FRESH FROZEN PLASMA [Concomitant]
     Active Substance: HUMAN PLASMA
     Dosage: 2 IU, UNK
     Dates: start: 20130324
  53. MEDLENIK [Concomitant]
     Active Substance: CUPRIC SULFATE\FERRIC CHLORIDE\MANGANESE CHLORIDE\POTASSIUM IODIDE\ZINC SULFATE
     Dosage: 2 ML, 1X/DAY
     Route: 042
     Dates: start: 20130324
  54. TARGOCID [Concomitant]
     Active Substance: TEICOPLANIN
     Dosage: UNK
     Dates: start: 20130324

REACTIONS (4)
  - Thrombocytopenia [Fatal]
  - Disseminated intravascular coagulation [Fatal]
  - Hepatic failure [Recovering/Resolving]
  - Gastrointestinal haemorrhage [Fatal]

NARRATIVE: CASE EVENT DATE: 20130324
